FAERS Safety Report 18935042 (Version 1)
Quarter: 2021Q1

REPORT INFORMATION
  Report Type: Spontaneous
  Country: US (occurrence: US)
  Receive Date: 20210224
  Receipt Date: 20210224
  Transmission Date: 20210420
  Serious: Yes (Hospitalization, Other)
  Sender: FDA-Public Use
  Company Number: US-OTSUKA-2021_005669

PATIENT
  Age: 20 Year
  Sex: Male
  Weight: 98 kg

DRUGS (8)
  1. VENETOCLAX. [Suspect]
     Active Substance: VENETOCLAX
     Dosage: 200 MG (200 MG,1 IN 1 D)
     Route: 048
     Dates: start: 20201202, end: 20201202
  2. FLUCONAZOLE. [Concomitant]
     Active Substance: FLUCONAZOLE
     Indication: PNEUMONIA FUNGAL
     Dosage: UNK
     Route: 048
     Dates: start: 20200125
  3. AZACITIDINE. [Suspect]
     Active Substance: AZACITIDINE
     Dosage: UNK
     Route: 042
     Dates: start: 20201105, end: 20201105
  4. VENETOCLAX. [Suspect]
     Active Substance: VENETOCLAX
     Indication: MYELODYSPLASTIC SYNDROME
     Dosage: 400 MG (400 MG,1 IN 1 D)
     Route: 048
     Dates: start: 20201203, end: 20201227
  5. DECITABINE. [Suspect]
     Active Substance: DECITABINE
     Indication: MYELODYSPLASTIC SYNDROME
     Dosage: 20 MG/M2, UNK
     Route: 042
     Dates: start: 20190923, end: 20191213
  6. AZACITIDINE. [Suspect]
     Active Substance: AZACITIDINE
     Indication: MYELODYSPLASTIC SYNDROME
     Dosage: 75 MG/M2, UNK
     Route: 042
     Dates: start: 20201204, end: 20201209
  7. AZACITIDINE. [Suspect]
     Active Substance: AZACITIDINE
     Dosage: UNK
     Route: 042
     Dates: start: 20200813, end: 20200924
  8. VENETOCLAX. [Suspect]
     Active Substance: VENETOCLAX
     Dosage: 100 MG (100 MG,1 IN 1 D)
     Route: 048
     Dates: start: 20201201, end: 20201201

REACTIONS (1)
  - Neutropenic colitis [Not Recovered/Not Resolved]

NARRATIVE: CASE EVENT DATE: 20210127
